FAERS Safety Report 5021790-3 (Version None)
Quarter: 2006Q2

REPORT INFORMATION
  Report Type: 
  Country: None (occurrence: None)
  Receive Date: 20060605
  Receipt Date: 20060526
  Transmission Date: 20061013
  Serious: Yes (Hospitalization)
  Sender: FDA-Public Use
  Company Number: S06-USA-02027-01

PATIENT
  Age: 80 Year
  Sex: Male

DRUGS (10)
  1. NAMENDA [Suspect]
     Indication: DEMENTIA
     Dosage: 5 MG QD PO
     Route: 048
     Dates: start: 20060301, end: 20060101
  2. NAMENDA [Suspect]
     Indication: NORMAL PRESSURE HYDROCEPHALUS
     Dosage: 5 MG QD PO
     Route: 048
     Dates: start: 20060301, end: 20060101
  3. NAMENDA [Suspect]
     Indication: DEMENTIA
     Dosage: 5 MG BID PO
     Route: 048
     Dates: start: 20060101, end: 20060101
  4. NAMENDA [Suspect]
     Indication: NORMAL PRESSURE HYDROCEPHALUS
     Dosage: 5 MG BID PO
     Route: 048
     Dates: start: 20060101, end: 20060101
  5. NAMENDA [Suspect]
     Indication: DEMENTIA
     Dosage: 15 MG QD PO
     Route: 048
     Dates: start: 20060101, end: 20060101
  6. NAMENDA [Suspect]
     Indication: NORMAL PRESSURE HYDROCEPHALUS
     Dosage: 15 MG QD PO
     Route: 048
     Dates: start: 20060101, end: 20060101
  7. NAMENDA [Suspect]
     Indication: DEMENTIA
     Dosage: 10 MG BID PO
     Route: 048
     Dates: start: 20060101
  8. NAMENDA [Suspect]
     Indication: NORMAL PRESSURE HYDROCEPHALUS
     Dosage: 10 MG BID PO
     Route: 048
     Dates: start: 20060101
  9. INSULIN [Concomitant]
  10. AMARYL [Concomitant]

REACTIONS (8)
  - AGGRESSION [None]
  - ASTHENIA [None]
  - FALL [None]
  - HYPERSOMNIA [None]
  - INCOHERENT [None]
  - STAPHYLOCOCCAL INFECTION [None]
  - THERAPEUTIC PRODUCT CONTAMINATION [None]
  - VERBAL ABUSE [None]
